FAERS Safety Report 4432274-5 (Version None)
Quarter: 2004Q3

REPORT INFORMATION
  Report Type: 
  Country: None (occurrence: None)
  Receive Date: 20040820
  Receipt Date: 20040809
  Transmission Date: 20050211
  Serious: No
  Sender: FDA-Public Use
  Company Number: 04H-062-0270028-00

PATIENT
  Age: 60 Year
  Sex: Female
  Weight: 71 kg

DRUGS (1)
  1. HEPARIN SODIUM [Suspect]
     Indication: THROMBOSIS PROPHYLAXIS
     Dosage: 7500 IU, TWICE A DAY FOR 5 DAYS, NOT REORTED

REACTIONS (6)
  - ANTI-PLATELET ANTIBODY POSITIVE [None]
  - ARTERIAL OCCLUSIVE DISEASE [None]
  - FEMORAL ARTERY OCCLUSION [None]
  - HEPARIN-INDUCED THROMBOCYTOPENIA [None]
  - PERIPHERAL ISCHAEMIA [None]
  - THROMBOSIS [None]
